FAERS Safety Report 12420821 (Version 1)
Quarter: 2016Q2

REPORT INFORMATION
  Report Type: Spontaneous
  Country: FR (occurrence: FR)
  Receive Date: 20160531
  Receipt Date: 20160531
  Transmission Date: 20160815
  Serious: Yes (Other)
  Sender: FDA-Public Use
  Company Number: FR-ACTAVIS-2016-11264

PATIENT
  Sex: Female

DRUGS (4)
  1. ENDOXAN                            /00021101/ [Suspect]
     Active Substance: CYCLOPHOSPHAMIDE
     Indication: INVASIVE DUCTAL BREAST CARCINOMA
     Dosage: 500 MG/M2, CYCLICAL
     Route: 065
  2. EPIRUBICIN (UNKNOWN) [Suspect]
     Active Substance: EPIRUBICIN
  3. FLUOROURACIL. [Suspect]
     Active Substance: FLUOROURACIL
     Indication: INVASIVE DUCTAL BREAST CARCINOMA
     Dosage: 500 MG/M2, CYCLICAL
     Route: 065
  4. EPIRUBICIN (UNKNOWN) [Suspect]
     Active Substance: EPIRUBICIN
     Indication: INVASIVE DUCTAL BREAST CARCINOMA
     Dosage: 100 MG/M2, CYCLICAL
     Route: 065

REACTIONS (1)
  - Drug ineffective [Not Recovered/Not Resolved]
